FAERS Safety Report 9922755 (Version 1)
Quarter: 2014Q1

REPORT INFORMATION
  Report Type: Spontaneous
  Country: GB (occurrence: GB)
  Receive Date: 20140225
  Receipt Date: 20140225
  Transmission Date: 20141002
  Serious: Yes (Other)
  Sender: FDA-Public Use
  Company Number: GB-WATSON-2014-02967

PATIENT
  Sex: Female

DRUGS (6)
  1. CYCLOSPORINE (UNKNOWN) [Suspect]
     Indication: CHRONIC SPONTANEOUS URTICARIA
     Dosage: UNK
     Route: 065
     Dates: start: 201310
  2. FEXOFENADINE (UNKNOWN) [Suspect]
     Indication: CHRONIC SPONTANEOUS URTICARIA
     Dosage: 360 MG, DAILY
     Route: 065
  3. CETIRIZINE (UNKNOWN) [Suspect]
     Indication: CHRONIC SPONTANEOUS URTICARIA
     Dosage: 10 MG, DAILY
     Route: 065
  4. RANITIDINE (UNKNOWN) [Suspect]
     Indication: CHRONIC SPONTANEOUS URTICARIA
     Dosage: 150 MG, BID
     Route: 065
  5. MONTELUKAST (UNKNOWN) [Suspect]
     Indication: CHRONIC SPONTANEOUS URTICARIA
     Dosage: 10 MG, QPM
     Route: 065
  6. HYDROXYZINE (UNKNOWN) [Suspect]
     Indication: CHRONIC SPONTANEOUS URTICARIA
     Dosage: 50 MG, QPM
     Route: 065

REACTIONS (6)
  - Angioedema [Unknown]
  - Chronic spontaneous urticaria [Recovering/Resolving]
  - Condition aggravated [Recovering/Resolving]
  - Pruritus [Unknown]
  - Insomnia [Unknown]
  - Drug ineffective [Unknown]
